FAERS Safety Report 17110956 (Version 3)
Quarter: 2020Q4

REPORT INFORMATION
  Report Type: Spontaneous
  Country: US (occurrence: US)
  Receive Date: 20191204
  Receipt Date: 20201013
  Transmission Date: 20210113
  Serious: No
  Sender: FDA-Public Use
  Company Number: US-PFIZER INC-2017536151

PATIENT
  Age: 41 Year
  Sex: Female

DRUGS (6)
  1. DOCETAXEL. [Suspect]
     Active Substance: DOCETAXEL
     Indication: TRIPLE POSITIVE BREAST CANCER
     Dosage: 130 MG, CYCLIC (06 CYCLES, EVERY THREE WEEKS)
     Dates: start: 20130606, end: 20130919
  2. TAXOTERE [Concomitant]
     Active Substance: DOCETAXEL
     Dosage: UNK
  3. PARAPLATIN [Concomitant]
     Active Substance: CARBOPLATIN
     Indication: CHEMOTHERAPY
     Dosage: UNK
  4. TAMOXIFEN [Concomitant]
     Active Substance: TAMOXIFEN
     Indication: HORMONE THERAPY
     Dosage: UNK
     Dates: start: 20140110
  5. KEFLEX [Concomitant]
     Active Substance: CEPHALEXIN
     Dosage: UNK
  6. HERCEPTIN [Concomitant]
     Active Substance: TRASTUZUMAB
     Dosage: UNK

REACTIONS (5)
  - Hair texture abnormal [Not Recovered/Not Resolved]
  - Hair disorder [Not Recovered/Not Resolved]
  - Madarosis [Not Recovered/Not Resolved]
  - Hair colour changes [Not Recovered/Not Resolved]
  - Alopecia [Not Recovered/Not Resolved]

NARRATIVE: CASE EVENT DATE: 20140319
